FAERS Safety Report 7797559-3 (Version None)
Quarter: 2011Q3

REPORT INFORMATION
  Report Type: 
  Country: None (occurrence: None)
  Receive Date: 20110921
  Receipt Date: 20110906
  Transmission Date: 20111222
  Serious: Yes (Hospitalization)
  Sender: FDA-Public Use
  Company Number: HAPL-014-11-GB

PATIENT
  Age: 33 Year
  Sex: Female

DRUGS (7)
  1. ROMIPLOSTIM [Suspect]
     Indication: IDIOPATHIC THROMBOCYTOPENIC PURPURA
     Dosage: 1 MG/KG - 1 X 1 /D SUBCUTANEOUS
     Route: 058
     Dates: start: 20100920, end: 20100920
  2. IMMUNE GLOBULIN (HUMAN) [Suspect]
     Indication: PRODUCT USED FOR UNKNOWN INDICATION
     Dosage: 1000 MG/KG - 1 X 1/D INTRAVENOUS (NOT OTHERWISE SPECIFIED)
     Route: 042
     Dates: start: 20100922, end: 20100923
  3. NORETHISTERONE [Suspect]
     Indication: PRODUCT USED FOR UNKNOWN INDICATION
     Dosage: 5 MG - 3 X 1 /D ORAL
     Route: 048
     Dates: start: 20100922, end: 20100928
  4. DEXAMETHASONE [Concomitant]
  5. LANSOPRAZOLE [Suspect]
     Indication: GASTROOESOPHAGEAL REFLUX PROPHYLAXIS
     Dosage: 30 MG - 1 X 1 / D ORAL
     Route: 048
     Dates: start: 20100907, end: 20100928
  6. RITUXIMAB [Suspect]
     Indication: PRODUCT USED FOR UNKNOWN INDICATION
     Dosage: 375 MG/M2 - 2 X 1 /WEEKS INTRAVENOUS (NOT OTHERWISE SPECIFIED)
     Route: 042
     Dates: start: 20100917, end: 20100924
  7. TRANEXAMIC ACID [Suspect]
     Indication: PRODUCT USED FOR UNKNOWN INDICATION
     Dosage: 1 DF - 4 X 1 / D ORAL
     Route: 048
     Dates: start: 20100922, end: 20100928

REACTIONS (6)
  - MELAENA [None]
  - VAGINAL HAEMORRHAGE [None]
  - RECTAL HAEMORRHAGE [None]
  - PURPURA [None]
  - HAEMOGLOBIN DECREASED [None]
  - RASH MACULO-PAPULAR [None]
